FAERS Safety Report 8808604 (Version 1)
Quarter: 2012Q4

REPORT INFORMATION
  Report Type: 
  Country: GB (occurrence: GB)
  Receive Date: 20120926
  Receipt Date: 20120926
  Transmission Date: 20130627
  Serious: Yes (Death, Hospitalization)
  Sender: FDA-Public Use
  Company Number: GB-MYLANLABS-2012S1019220

PATIENT
  Age: 67 Year
  Sex: Male
  Weight: 42 kg

DRUGS (8)
  1. MARCAIN/ADRENALIN [Suspect]
     Indication: NERVE BLOCK
     Dosage: 0.375% bupivacaine with epinephrine 1:200 000 (bupivacaine 112.5mg, 2.7 mg/kg)
     Route: 050
  2. BUPIVACAINE [Interacting]
     Indication: NERVE BLOCK
     Dosage: 0.1% bupivacaine (20mg, 0.48 mg/kg); infusion at 16 mL/h also started
     Route: 050
  3. BUPIVACAINE [Interacting]
     Indication: NERVE BLOCK
     Dosage: continuous infusion of 0.1% bupivacaine at 16 mL/h (16 mg/h, 0.38 mg/kg/h)
     Route: 050
  4. BUPIVACAINE [Interacting]
     Indication: NERVE BLOCK
     Dosage: additional boluses of 0.1% bupivacaine (20mg, 0.48 mg/kg)
     Route: 050
  5. VORICONAZOLE [Interacting]
     Indication: ANTIBIOTIC THERAPY
     Dosage: then 150mg every 12h after surgery
     Route: 042
  6. VORICONAZOLE [Interacting]
     Indication: ANTIBIOTIC THERAPY
     Route: 042
  7. PARACETAMOL [Concomitant]
     Indication: ANALGESIC THERAPY
     Route: 065
  8. MORPHINE [Concomitant]
     Indication: ANALGESIC THERAPY
     Dosage: patient-controlled
     Route: 042

REACTIONS (7)
  - Toxicity to various agents [Fatal]
  - Respiratory failure [Fatal]
  - Grand mal convulsion [Recovered/Resolved]
  - Pneumonia aspiration [Not Recovered/Not Resolved]
  - Aspiration [Not Recovered/Not Resolved]
  - Acute respiratory distress syndrome [Not Recovered/Not Resolved]
  - Drug interaction [Not Recovered/Not Resolved]
